FAERS Safety Report 25062374 (Version 1)
Quarter: 2025Q1

REPORT INFORMATION
  Report Type: Spontaneous
  Country: JP (occurrence: JP)
  Receive Date: 20250311
  Receipt Date: 20250311
  Transmission Date: 20250408
  Serious: Yes (Other)
  Sender: ROCHE
  Company Number: JP-ROCHE-10000225395

PATIENT
  Age: 65 Year
  Sex: Female

DRUGS (2)
  1. ALECTINIB [Suspect]
     Active Substance: ALECTINIB
     Indication: Small intestine carcinoma
     Route: 065
  2. BRIGATINIB [Concomitant]
     Active Substance: BRIGATINIB

REACTIONS (2)
  - Disease progression [Unknown]
  - Drug resistance mutation [Unknown]
